FAERS Safety Report 7764147-4 (Version None)
Quarter: 2011Q3

REPORT INFORMATION
  Report Type: 
  Country: None (occurrence: None)
  Receive Date: 20110921
  Receipt Date: 20110901
  Transmission Date: 20111222
  Serious: Yes (Hospitalization, Other)
  Sender: FDA-Public Use
  Company Number: DE-UCBSA-036205

PATIENT
  Age: 51 Year
  Sex: Male

DRUGS (18)
  1. LEVETIRACETAM [Suspect]
     Indication: EPILEPSY
  2. VALPROATE SODIUM [Suspect]
     Dosage: 2 X 500 MG
  3. CARBAMAZEPINE [Suspect]
     Dosage: 800 MG
  4. TIAGABINE HCL [Concomitant]
     Dosage: UP TO 15 MG/DAY
  5. VIMPAT [Suspect]
     Indication: EPILEPSY
  6. LYRICA [Concomitant]
  7. VALPROATE SODIUM [Suspect]
     Dosage: MAX. 2400 MG
  8. CARBAMAZEPINE [Suspect]
     Indication: EPILEPSY
     Dosage: 600-800 MG/DAY
  9. CARBAMAZEPINE [Suspect]
     Dosage: MAX DAILY DOSE- 1600 MG
  10. VALPROATE SODIUM [Suspect]
     Indication: EPILEPSY
  11. CARBAMAZEPINE [Suspect]
     Dosage: 1600 MG
  12. CARBAMAZEPINE [Suspect]
     Dosage: 600 MG/D
     Dates: end: 20110301
  13. VIMPAT [Suspect]
     Dosage: MAX DOSE OF 2X200 MG
  14. CARBAMAZEPINE [Suspect]
  15. VALPROATE SODIUM [Suspect]
  16. CARBAMAZEPINE [Suspect]
     Dosage: 1600 MG
  17. GABAPENTIN [Concomitant]
     Dosage: UP TO 900 MG/DAY
  18. CARBAMAZEPINE [Suspect]
     Dosage: 800 MG

REACTIONS (9)
  - ABASIA [None]
  - AGGRESSION [None]
  - COGNITIVE DISORDER [None]
  - GAIT DISTURBANCE [None]
  - FATIGUE [None]
  - CONVULSION [None]
  - GRAND MAL CONVULSION [None]
  - LUMBAR VERTEBRAL FRACTURE [None]
  - FALL [None]
